FAERS Safety Report 5938349-3 (Version None)
Quarter: 2008Q4

REPORT INFORMATION
  Report Type: 
  Country: None (occurrence: None)
  Receive Date: 20081103
  Receipt Date: 20081023
  Transmission Date: 20090506
  Serious: Yes (Other)
  Sender: FDA-Public Use
  Company Number: US-JNJFOC-20081000432

PATIENT
  Sex: Male
  Weight: 92.08 kg

DRUGS (10)
  1. REMICADE [Suspect]
     Indication: ANKYLOSING SPONDYLITIS
     Route: 042
  2. REMICADE [Suspect]
     Indication: RHEUMATOID ARTHRITIS
     Dosage: TREATMENT DURATION: 18 MONTHS; DOSE: 3.5 MG/KG TO 6.73 MG/KG
     Route: 042
  3. METHOTREXATE [Concomitant]
     Indication: ANKYLOSING SPONDYLITIS
     Dosage: 12.5 - 25 MG
  4. RECLAST [Concomitant]
     Indication: OSTEOPOROSIS
  5. OMEPRAZOLE [Concomitant]
     Indication: GASTROOESOPHAGEAL REFLUX DISEASE
  6. ATENOLOL [Concomitant]
     Indication: HYPERTENSION
  7. HYDROCHLOROTHIAZIDE [Concomitant]
     Indication: HYPERTENSION
  8. ZOCOR [Concomitant]
     Indication: HYPERCHOLESTEROLAEMIA
  9. ZOLOFT [Concomitant]
     Indication: DEPRESSION
  10. WELLBUTRIN [Concomitant]
     Indication: DEPRESSION

REACTIONS (1)
  - CHRONIC LYMPHOCYTIC LEUKAEMIA [None]
